FAERS Safety Report 15563170 (Version 4)
Quarter: 2020Q3

REPORT INFORMATION
  Report Type: Report from Study
  Country: US (occurrence: US)
  Receive Date: 20181029
  Receipt Date: 20200910
  Transmission Date: 20201102
  Serious: Yes (Hospitalization, Other)
  Sender: FDA-Public Use
  Company Number: PHEH2018US045685

PATIENT
  Age: 18 Year
  Sex: Male

DRUGS (4)
  1. AFINITOR [Suspect]
     Active Substance: EVEROLIMUS
     Dosage: 10 MG, BIW
     Route: 048
  2. AFINITOR [Suspect]
     Active Substance: EVEROLIMUS
     Indication: ASTROCYTOMA, LOW GRADE
     Dosage: 10 MG, QD
     Route: 048
     Dates: start: 20131229, end: 20181207
  3. AFINITOR [Suspect]
     Active Substance: EVEROLIMUS
     Dosage: 10 MG, QD
     Route: 048
     Dates: start: 20181209
  4. AFINITOR [Suspect]
     Active Substance: EVEROLIMUS
     Dosage: 10 MG, QW
     Route: 048

REACTIONS (8)
  - Astrocytoma, low grade [Unknown]
  - Furuncle [Unknown]
  - Acne [Not Recovered/Not Resolved]
  - Oral herpes [Unknown]
  - Hypertension [Unknown]
  - Neoplasm progression [Unknown]
  - Diabetes mellitus [Unknown]
  - Diarrhoea [Unknown]

NARRATIVE: CASE EVENT DATE: 20181207
